FAERS Safety Report 18545162 (Version 1)
Quarter: 2020Q4

REPORT INFORMATION
  Report Type: Spontaneous
  Country: US (occurrence: US)
  Receive Date: 20201125
  Receipt Date: 20201125
  Transmission Date: 20210114
  Serious: Yes (Hospitalization)
  Sender: FDA-Public Use
  Company Number: None

PATIENT
  Age: 66 Year
  Sex: Male
  Weight: 99.3 kg

DRUGS (1)
  1. BAMLANIVIMAB. [Suspect]
     Active Substance: BAMLANIVIMAB
     Indication: COVID-19
     Dosage: ?          OTHER FREQUENCY:ONCE;?
     Route: 042
     Dates: start: 20201124, end: 20201124

REACTIONS (11)
  - Pyrexia [None]
  - Hypoxia [None]
  - Oxygen saturation decreased [None]
  - Lung infiltration [None]
  - Sputum increased [None]
  - Hyperhidrosis [None]
  - Nausea [None]
  - Illness [None]
  - Cough [None]
  - Pneumonia [None]
  - Dyspnoea [None]

NARRATIVE: CASE EVENT DATE: 20201124
